FAERS Safety Report 5672444-1 (Version None)
Quarter: 2008Q1

REPORT INFORMATION
  Report Type: 
  Country: None (occurrence: None)
  Receive Date: 20080319
  Receipt Date: 20080311
  Transmission Date: 20080703
  Serious: Yes (Other)
  Sender: FDA-Public Use
  Company Number: B0505013A

PATIENT
  Age: 49 Year
  Sex: Male

DRUGS (2)
  1. NICOTINE [Suspect]
     Dosage: 20GUM PER DAY
     Route: 002
     Dates: start: 20010101
  2. FLUOXETINE [Concomitant]
     Indication: DEPRESSION
     Route: 065

REACTIONS (6)
  - DEPENDENCE [None]
  - DISTURBANCE IN ATTENTION [None]
  - DIZZINESS [None]
  - INCORRECT DRUG ADMINISTRATION DURATION [None]
  - MALAISE [None]
  - WITHDRAWAL SYNDROME [None]
